APPROVED DRUG PRODUCT: ERYCETTE
Active Ingredient: ERYTHROMYCIN
Strength: 2% **Federal Register determination that product was not discontinued or withdrawn for safety or effectiveness reasons**
Dosage Form/Route: SWAB;TOPICAL
Application: N050594 | Product #001
Applicant: JOHNSON AND JOHNSON CONSUMER COMPANIES INC
Approved: Feb 15, 1985 | RLD: Yes | RS: No | Type: DISCN